FAERS Safety Report 14822928 (Version 19)
Quarter: 2020Q2

REPORT INFORMATION
  Report Type: Report from Study
  Country: CA (occurrence: CA)
  Receive Date: 20180427
  Receipt Date: 20200512
  Transmission Date: 20200713
  Serious: Yes (Other)
  Sender: FDA-Public Use
  Company Number: PHHY2018CA044669

PATIENT
  Age: 62 Year
  Sex: Female
  Weight: 97 kg

DRUGS (18)
  1. SIGNIFOR [Suspect]
     Active Substance: PASIREOTIDE DIASPARTATE
     Dosage: 0.9 MG, BID
     Route: 058
     Dates: start: 20180801
  2. CALCIUM [Concomitant]
     Active Substance: CALCIUM
     Indication: PRODUCT USED FOR UNKNOWN INDICATION
     Dosage: UNK
     Route: 065
  3. EZETIMIBE. [Concomitant]
     Active Substance: EZETIMIBE
     Indication: BLOOD CHOLESTEROL ABNORMAL
     Dosage: 1 DF, QD
     Route: 065
     Dates: start: 202001
  4. SIGNIFOR LAR [Suspect]
     Active Substance: PASIREOTIDE PAMOATE
     Indication: PITUITARY-DEPENDENT CUSHING^S SYNDROME
     Dosage: 20 MG, QMO
     Route: 030
     Dates: start: 20180308
  5. PANTOPRAZOLE [Suspect]
     Active Substance: PANTOPRAZOLE
     Indication: PRODUCT USED FOR UNKNOWN INDICATION
     Dosage: BID
     Route: 065
  6. FERROUS SULFATE. [Concomitant]
     Active Substance: FERROUS SULFATE
     Indication: PRODUCT USED FOR UNKNOWN INDICATION
     Dosage: UNK
     Route: 065
  7. AMLODIPINE [Concomitant]
     Active Substance: AMLODIPINE BESYLATE
     Indication: BLOOD PRESSURE ABNORMAL
     Dosage: 1 DF, QD
     Route: 048
     Dates: start: 202001
  8. IRBESARTAN HCT [Concomitant]
     Active Substance: HYDROCHLOROTHIAZIDE\IRBESARTAN
     Indication: PRODUCT USED FOR UNKNOWN INDICATION
     Dosage: UNK
     Route: 065
  9. IRON [Concomitant]
     Active Substance: IRON
     Indication: PRODUCT USED FOR UNKNOWN INDICATION
     Dosage: UNK
     Route: 065
  10. PANTOLOC [Concomitant]
     Active Substance: PANTOPRAZOLE SODIUM
     Indication: PRODUCT USED FOR UNKNOWN INDICATION
     Dosage: UNK
     Route: 065
  11. SIGNIFOR [Suspect]
     Active Substance: PASIREOTIDE DIASPARTATE
     Indication: PITUITARY-DEPENDENT CUSHING^S SYNDROME
     Dosage: 0.3 MG, BID
     Route: 058
     Dates: start: 20180308
  12. SIGNIFOR [Suspect]
     Active Substance: PASIREOTIDE DIASPARTATE
     Dosage: 0.6 MG, BID
     Route: 058
     Dates: start: 201803, end: 20180416
  13. VITAMIN D [Concomitant]
     Active Substance: VITAMIN D NOS
     Indication: PRODUCT USED FOR UNKNOWN INDICATION
     Dosage: UNK
     Route: 065
  14. CABERGOLINE. [Concomitant]
     Active Substance: CABERGOLINE
     Indication: PRODUCT USED FOR UNKNOWN INDICATION
     Dosage: UNK
     Route: 065
  15. CRESTOR [Concomitant]
     Active Substance: ROSUVASTATIN CALCIUM
     Indication: PRODUCT USED FOR UNKNOWN INDICATION
     Dosage: UNK
     Route: 065
  16. CORTEF [Suspect]
     Active Substance: HYDROCORTISONE
     Indication: PRODUCT USED FOR UNKNOWN INDICATION
     Dosage: UNK
     Route: 065
  17. CARBAMIDE [Concomitant]
     Active Substance: UREA
     Indication: PRODUCT USED FOR UNKNOWN INDICATION
     Dosage: UNK
     Route: 065
  18. JANUMET [Concomitant]
     Active Substance: METFORMIN HYDROCHLORIDE\SITAGLIPTIN PHOSPHATE
     Indication: PRODUCT USED FOR UNKNOWN INDICATION
     Dosage: UNK
     Route: 065

REACTIONS (35)
  - Hyperglycaemia [Not Recovered/Not Resolved]
  - Injection site vesicles [Unknown]
  - Gait inability [Unknown]
  - Vaginal haemorrhage [Unknown]
  - Cortisol increased [Unknown]
  - Fatigue [Unknown]
  - Dizziness [Unknown]
  - Abdominal pain upper [Unknown]
  - Blood pressure systolic increased [Unknown]
  - Nausea [Unknown]
  - Peripheral swelling [Unknown]
  - Dysuria [Not Recovered/Not Resolved]
  - Uterine polyp [Unknown]
  - Somnolence [Unknown]
  - Dyspnoea exertional [Unknown]
  - Frequent bowel movements [Unknown]
  - Blood urine present [Unknown]
  - Arthropathy [Unknown]
  - Abdominal pain lower [Recovered/Resolved]
  - Abnormal faeces [Recovered/Resolved]
  - Chest pain [Recovered/Resolved]
  - Dyspnoea [Recovering/Resolving]
  - Hydrothorax [Recovered/Resolved]
  - Uterine haemorrhage [Unknown]
  - Dysphagia [Unknown]
  - Asthenia [Unknown]
  - Uterine mass [Unknown]
  - Vomiting [Recovered/Resolved]
  - Abdominal discomfort [Unknown]
  - Headache [Unknown]
  - Balance disorder [Unknown]
  - Pain [Unknown]
  - Nausea [Recovered/Resolved]
  - Injection site pain [Unknown]
  - Weight increased [Unknown]

NARRATIVE: CASE EVENT DATE: 201803
